FAERS Safety Report 6623149-1 (Version None)
Quarter: 2010Q1

REPORT INFORMATION
  Report Type: 
  Country: None (occurrence: None)
  Receive Date: 20100310
  Receipt Date: 20100210
  Transmission Date: 20100710
  Serious: No
  Sender: FDA-Public Use
  Company Number: US-BIOGENIDEC-2009BI041100

PATIENT
  Age: 54 Year
  Sex: Female

DRUGS (3)
  1. AVONEX [Suspect]
     Indication: MULTIPLE SCLEROSIS
     Route: 030
     Dates: start: 20090131
  2. BLOOD PRESSURE MEDICATION (NOS) [Concomitant]
     Indication: HYPERTENSION
  3. AZITHROMYC [Concomitant]
     Indication: GASTRIC DISORDER

REACTIONS (4)
  - ADVERSE DRUG REACTION [None]
  - ANXIETY [None]
  - BLOOD PRESSURE INCREASED [None]
  - TREMOR [None]
